FAERS Safety Report 11330075 (Version 14)
Quarter: 2021Q4

REPORT INFORMATION
  Report Type: Spontaneous
  Country: US (occurrence: US)
  Receive Date: 20150803
  Receipt Date: 20211217
  Transmission Date: 20220303
  Serious: Yes (Other)
  Sender: FDA-Public Use
  Company Number: US-PFIZER INC-2015258105

PATIENT
  Age: 73 Year
  Sex: Female
  Weight: 67 kg

DRUGS (31)
  1. LYRICA [Suspect]
     Active Substance: PREGABALIN
     Indication: Fibromyalgia
     Dosage: 75 MG, EVERY 4 HRS
     Route: 048
  2. LYRICA [Suspect]
     Active Substance: PREGABALIN
     Indication: Trigeminal neuralgia
     Dosage: UNK, DAILY (1-2 TABLETS)
     Route: 048
  3. LYRICA [Suspect]
     Active Substance: PREGABALIN
     Dosage: 75 MG, 4X/DAY
     Route: 048
     Dates: start: 20150311, end: 20160418
  4. LYRICA [Suspect]
     Active Substance: PREGABALIN
     Dosage: 75 MG, 4X/DAY
     Route: 048
     Dates: start: 20160418, end: 2016
  5. LYRICA [Suspect]
     Active Substance: PREGABALIN
     Dosage: 75 MG, 4X/DAY
     Route: 048
     Dates: start: 20160921
  6. LYRICA [Suspect]
     Active Substance: PREGABALIN
     Dosage: 75 MG, 4X/DAY
     Route: 048
  7. XANAX [Concomitant]
     Active Substance: ALPRAZOLAM
     Indication: Anxiety
     Dosage: 6.5 MG, DAILY (1 MG TABLET, 1.5 TABLETS THREE TIMES A DAY AND 2 TABLETS AT BEDTIME)
     Route: 048
     Dates: start: 2006
  8. XANAX [Concomitant]
     Active Substance: ALPRAZOLAM
     Dosage: 6.5 MG, DAILY (1 MG TABLET, 1.5 TABLETS THREE TIMES A DAY AND 2 TABLETS AT BEDTIME)
     Route: 048
     Dates: start: 20160209, end: 2016
  9. XANAX [Concomitant]
     Active Substance: ALPRAZOLAM
     Dosage: 6.5 MG, DAILY (1 MG TABLET; SIG: TAKE 1 AND 1/2 TABLETS TID AND 2 TABLETS AT BEDTIME)
     Route: 048
     Dates: start: 20160725, end: 2016
  10. XANAX [Concomitant]
     Active Substance: ALPRAZOLAM
     Dosage: 6.5 MG, DAILY (1 MG TABLET; SIG: TAKE 1 AND 1/2 TABLETS TID AND 2 TABLETS AT BEDTIME)
     Route: 048
     Dates: start: 20161028
  11. BUSPAR [Concomitant]
     Active Substance: BUSPIRONE HYDROCHLORIDE
     Indication: Anxiety
     Dosage: 15 MG, 3X/DAY
     Route: 048
     Dates: start: 20150526
  12. BUSPAR [Concomitant]
     Active Substance: BUSPIRONE HYDROCHLORIDE
     Indication: Muscle spasms
     Dosage: 15 MG, 3X/DAY
     Route: 048
     Dates: start: 20160129, end: 2016
  13. BUSPAR [Concomitant]
     Active Substance: BUSPIRONE HYDROCHLORIDE
     Dosage: 15 MG, 3X/DAY
     Route: 048
     Dates: start: 20160722, end: 2016
  14. BUSPAR [Concomitant]
     Active Substance: BUSPIRONE HYDROCHLORIDE
     Dosage: 15 MG, 3X/DAY
     Route: 048
     Dates: start: 20161028
  15. SULFASALAZINE [Concomitant]
     Active Substance: SULFASALAZINE
     Indication: Colitis microscopic
     Dosage: 500 MG, 4X/DAY
  16. AMMONIUM LACTATE [Concomitant]
     Active Substance: AMMONIUM LACTATE
     Dosage: 12 %, AS NEEDED (EVERY 12 HRS)
     Route: 061
  17. PARAFON FORTE [Concomitant]
     Active Substance: CHLORZOXAZONE
     Indication: Muscle spasms
     Dosage: 500 MG, AS NEEDED (4X/DAY)
     Route: 048
     Dates: start: 20140218
  18. LOMOTIL [Concomitant]
     Active Substance: ATROPINE SULFATE\DIPHENOXYLATE HYDROCHLORIDE
     Indication: Diarrhoea
     Dosage: 2 DF, 4X/DAY (DIPHENOXYLATE HYDROCHLORIDE 2.5MG/ ATROPINE 0.025 MG AS NEEDED)
     Route: 048
     Dates: start: 20131004
  19. LOMOTIL [Concomitant]
     Active Substance: ATROPINE SULFATE\DIPHENOXYLATE HYDROCHLORIDE
     Dosage: 2 DF, 4X/DAY (DIPHENOXYLATE HYDROCHLORIDE 2.5MG/ ATROPINE 0.025 MG)
     Route: 048
     Dates: start: 20160819
  20. CLIMARA [Concomitant]
     Active Substance: ESTRADIOL
     Dosage: 1 DF, WEEKLY (1 PATCH ONTO THE SKIN ONCE A WEEK)
     Route: 062
     Dates: start: 20141125
  21. CLIMARA [Concomitant]
     Active Substance: ESTRADIOL
     Dosage: 1 DF, WEEKLY (0.0375MG/24HR PLACE 1 PATCH ONTO THE SKIN ONCE A WEEK)
     Route: 062
     Dates: start: 20150825
  22. CLIMARA [Concomitant]
     Active Substance: ESTRADIOL
     Dosage: 1 DF, WEEKLY (0.0375MG/24HR PLACE 1 PATCH ONTO THE SKIN ONCE A WEEK)
     Route: 062
     Dates: start: 20160520
  23. NORCO [Concomitant]
     Active Substance: ACETAMINOPHEN\HYDROCODONE BITARTRATE
     Dosage: 4X/DAY (HYDROCODONE BITARTRATE:5MG/ACETAMINOPHEN 325MG TAKE 1/2 1 EVERY 6 HOURS AS NEEDED)
     Route: 048
     Dates: start: 20150608
  24. NASONEX [Concomitant]
     Active Substance: MOMETASONE FUROATE
     Dosage: UNK, DAILY (2 SPRAYS INTO NARE(S) DAILY,50MCG/ACTUATION)
     Route: 045
     Dates: start: 20150224
  25. AZULFIDINE [Concomitant]
     Active Substance: SULFASALAZINE
     Dosage: 500 MG, 4X/DAY
     Route: 048
     Dates: start: 20150226
  26. AZULFIDINE [Concomitant]
     Active Substance: SULFASALAZINE
     Dosage: 500 MG, 4X/DAY
     Route: 048
     Dates: start: 20160129, end: 2016
  27. AZULFIDINE [Concomitant]
     Active Substance: SULFASALAZINE
     Dosage: 500 MG, 4X/DAY
     Route: 048
     Dates: start: 20160722, end: 2016
  28. AZULFIDINE [Concomitant]
     Active Substance: SULFASALAZINE
     Dosage: 500 MG, 4X/DAY
     Route: 048
     Dates: start: 20161028
  29. BENEFIBER [Concomitant]
     Active Substance: STARCH, WHEAT
     Dosage: 1 DF, DAILY (3 GRAM/3.5 GRAM POWD, 1 PACKET DAILY)
     Route: 048
  30. TYLENOL [Concomitant]
     Active Substance: ACETAMINOPHEN
     Indication: Arthritis
     Dosage: 1300 MG, AS NEEDED (EVERY 8 (EIGHT) HOURS AS NEEDED)
     Route: 048
     Dates: start: 20160218
  31. TYLENOL [Concomitant]
     Active Substance: ACETAMINOPHEN
     Indication: Pain

REACTIONS (8)
  - Nerve injury [Unknown]
  - Weight increased [Recovered/Resolved]
  - Hypoaesthesia [Not Recovered/Not Resolved]
  - Eye pain [Not Recovered/Not Resolved]
  - Hypoaesthesia oral [Not Recovered/Not Resolved]
  - Facial pain [Unknown]
  - Lacrimation increased [Unknown]
  - Salivary hypersecretion [Unknown]

NARRATIVE: CASE EVENT DATE: 20060101
